FAERS Safety Report 17261331 (Version 1)
Quarter: 2020Q1

REPORT INFORMATION
  Report Type: Spontaneous
  Country: DE (occurrence: DE)
  Receive Date: 20200113
  Receipt Date: 20200113
  Transmission Date: 20200409
  Serious: Yes (Death)
  Sender: FDA-Public Use
  Company Number: DE-BIODELIVERY SCIENCES INTERNATIONAL-2020BDSI0021

PATIENT
  Age: 78 Year
  Weight: 61 kg

DRUGS (3)
  1. FENTANYL CITRATE. [Suspect]
     Active Substance: FENTANYL CITRATE
     Indication: PAIN MANAGEMENT
     Route: 065
     Dates: start: 20191004
  2. FERROUS GLUCONATE/COPPER GLUCONATE/ZINC GLUCONATE/MANGANESE GLUCONATE/SODIUM MOLYBDATE/POTASSIUM IOD [Suspect]
     Active Substance: ELECTROLYTES NOS\MINERALS
     Indication: PARENTERAL NUTRITION
  3. ASCORBIC ACID/PYRIDOXINE HYDROCHLORIDE/BIOTIN/TOCOPHEROL/FOLIC ACID/COLECALCIFEROL/CYANOCOBALAMIN/RE [Suspect]
     Active Substance: VITAMINS
     Indication: PARENTERAL NUTRITION

REACTIONS (16)
  - Abdominal pain [Unknown]
  - Weight decreased [Unknown]
  - Odynophagia [Unknown]
  - Dyspnoea [Unknown]
  - Dry mouth [Not Recovered/Not Resolved]
  - Decreased appetite [Unknown]
  - Abdominal pain upper [Unknown]
  - Pain [Unknown]
  - Death [Fatal]
  - Dysphonia [Unknown]
  - Increased upper airway secretion [Unknown]
  - Fatigue [Not Recovered/Not Resolved]
  - Taste disorder [Not Recovered/Not Resolved]
  - Hypophagia [Unknown]
  - Diarrhoea [Not Recovered/Not Resolved]
  - General physical health deterioration [Unknown]

NARRATIVE: CASE EVENT DATE: 20191013
